FAERS Safety Report 6986025-0 (Version None)
Quarter: 2010Q3

REPORT INFORMATION
  Report Type: 
  Country: None (occurrence: None)
  Receive Date: 20100915
  Receipt Date: 20100907
  Transmission Date: 20110219
  Serious: Yes (Death)
  Sender: FDA-Public Use
  Company Number: US-ABBOTT-10P-163-0668767-00

PATIENT
  Age: 36 Year
  Sex: Male

DRUGS (3)
  1. ACETAMINOPHEN AND HYDROCODONE BITARTRATE [Suspect]
     Indication: PRODUCT USED FOR UNKNOWN INDICATION
  2. AMBIEN [Suspect]
     Indication: INSOMNIA
     Dosage: TABLET, FILM COATED
     Route: 048
  3. UNSPECIFIED OPIATES [Suspect]
     Indication: PRODUCT USED FOR UNKNOWN INDICATION

REACTIONS (3)
  - COMPLETED SUICIDE [None]
  - DRUG LEVEL ABOVE THERAPEUTIC [None]
  - GUN SHOT WOUND [None]
